FAERS Safety Report 4539355-6 (Version None)
Quarter: 2004Q4

REPORT INFORMATION
  Report Type: 
  Country: None (occurrence: None)
  Receive Date: 20041223
  Receipt Date: 20030725
  Transmission Date: 20050328
  Serious: No
  Sender: FDA-Public Use
  Company Number: US-JNJFOC-20041201371

PATIENT
  Sex: Female

DRUGS (2)
  1. FLEXERIL [Suspect]
     Dosage: 10 MG, 3 IN 1 DAY, ORAL
     Route: 048
  2. ULTRACET [Suspect]
     Indication: DEPRESSION
     Dosage: 50 MG, 4 IN 1 DAY

REACTIONS (4)
  - NERVOUS SYSTEM DISORDER [None]
  - PARAESTHESIA [None]
  - RESTLESS LEGS SYNDROME [None]
  - TREMOR [None]
